FAERS Safety Report 11622579 (Version 1)
Quarter: 2015Q4

REPORT INFORMATION
  Report Type: Spontaneous
  Country: US (occurrence: US)
  Receive Date: 20151013
  Receipt Date: 20151013
  Transmission Date: 20160304
  Serious: No
  Sender: FDA-Public Use
  Company Number: US-JNJFOC-20150508217

PATIENT
  Age: 79 Year
  Sex: Male
  Weight: 90.72 kg

DRUGS (1)
  1. TYLENOL ARTHRITIS PAIN [Suspect]
     Active Substance: ACETAMINOPHEN
     Indication: ARTHRALGIA
     Dosage: 1-2 CAPLETS AS NEEDED
     Route: 048

REACTIONS (1)
  - Incorrect dose administered [Unknown]
